FAERS Safety Report 19954046 (Version 4)
Quarter: 2021Q4

REPORT INFORMATION
  Report Type: Report from Study
  Country: US (occurrence: US)
  Receive Date: 20211014
  Receipt Date: 20211222
  Transmission Date: 20220303
  Serious: Yes (Hospitalization, Other)
  Sender: FDA-Public Use
  Company Number: US-NOVARTISPH-NVSC2021US214871

PATIENT
  Age: 4 Year
  Sex: Female
  Weight: 15.4 kg

DRUGS (44)
  1. MEKINIST [Suspect]
     Active Substance: TRAMETINIB DIMETHYL SULFOXIDE
     Indication: Product used for unknown indication
     Dosage: 0.45 MG, QD
     Route: 048
     Dates: start: 20171130, end: 20211117
  2. ACETAMINOPHEN [Concomitant]
     Active Substance: ACETAMINOPHEN
     Indication: Product used for unknown indication
     Dosage: 15 MG/KG, Q6HPRN
     Route: 065
  3. ACETAMINOPHEN [Concomitant]
     Active Substance: ACETAMINOPHEN
     Dosage: UNK
     Route: 065
  4. ALBUTEROL [Concomitant]
     Active Substance: ALBUTEROL
     Indication: Product used for unknown indication
     Dosage: 2.5 MG, Q4H PRN DAILY AT 1800
     Route: 065
     Dates: start: 20210919
  5. CETIRIZINE [Concomitant]
     Active Substance: CETIRIZINE HYDROCHLORIDE
     Indication: Product used for unknown indication
     Dosage: 2.5 MG, QD
     Route: 065
  6. CLINDAMYCIN PALMITATE HYDROCHLORIDE [Concomitant]
     Active Substance: CLINDAMYCIN PALMITATE HYDROCHLORIDE
     Indication: Product used for unknown indication
     Dosage: 40 MG/KG/DAY, Q8H
     Route: 065
  7. DIPHENHYDRAMINE [Concomitant]
     Active Substance: DIPHENHYDRAMINE
     Indication: Product used for unknown indication
     Dosage: 12.5 MG, Q6HPRN
     Route: 065
  8. DIPHENHYDRAMINE [Concomitant]
     Active Substance: DIPHENHYDRAMINE
     Dosage: UNK (12.5 MG/5 ML ORAL LIQUID)
     Route: 065
  9. FAMOTIDINE [Concomitant]
     Active Substance: FAMOTIDINE
     Indication: Product used for unknown indication
     Dosage: 7.5 MG, Q12H SCH
     Route: 065
     Dates: start: 20210919
  10. GABAPENTIN [Concomitant]
     Active Substance: GABAPENTIN
     Indication: Product used for unknown indication
     Dosage: 250 MG, Q8H SCH
     Route: 065
  11. GLYCERIN [Concomitant]
     Active Substance: GLYCERIN
     Indication: Product used for unknown indication
     Dosage: 1 ML, Q12H PRN (AS NEEDED (NO BOWEL MOVEMENT))
     Route: 054
  12. LACTOBACILLUS RHAMNOSUS [Concomitant]
     Active Substance: LACTOBACILLUS RHAMNOSUS
     Indication: Product used for unknown indication
     Dosage: 1 DF, QD
     Route: 065
     Dates: start: 20210919
  13. LEVETIRACETAM [Concomitant]
     Active Substance: LEVETIRACETAM
     Indication: Product used for unknown indication
     Dosage: 250 MG, BID
     Route: 065
  14. MELATONIN [Concomitant]
     Active Substance: MELATONIN
     Indication: Product used for unknown indication
     Dosage: 6 MG NIGHTLY PRN
     Route: 065
  15. MELATONIN [Concomitant]
     Active Substance: MELATONIN
     Dosage: UNK (6 ML (6 MG TOTAL) BY G-TUBE ROUTE AT BEDTIME AS NEEDED (SLEEP))
     Route: 065
  16. MENTHOL;ZINC [Concomitant]
     Indication: Product used for unknown indication
     Dosage: 1 APPLICATION 4X DAILY PRN
     Route: 061
  17. MUPIROCIN [Concomitant]
     Active Substance: MUPIROCIN
     Indication: Product used for unknown indication
     Dosage: UNK, TID
     Route: 061
  18. NITROFURANTOIN [Concomitant]
     Active Substance: NITROFURANTOIN
     Indication: Product used for unknown indication
     Dosage: 25 MG, NIGHTLY
     Route: 065
  19. SODIUM CHLORIDE [Concomitant]
     Active Substance: SODIUM CHLORIDE
     Indication: Product used for unknown indication
     Dosage: 250 ML, PRN
     Route: 042
  20. SODIUM CHLORIDE [Concomitant]
     Active Substance: SODIUM CHLORIDE
     Dosage: 50 ML, PRN
     Route: 042
  21. NYSTATIN [Concomitant]
     Active Substance: NYSTATIN
     Indication: Product used for unknown indication
     Dosage: UNK, BID PRN
     Route: 061
  22. POLYETHYLENE GLYCOL [Concomitant]
     Active Substance: POLYETHYLENE GLYCOL
     Indication: Product used for unknown indication
     Dosage: 17 G, QD PRN
     Route: 048
     Dates: start: 20210919
  23. SIMETHICONE (DIMETHICONE) [Concomitant]
     Active Substance: DIMETHICONE
     Indication: Flatulence
     Dosage: 40 MG, 4X DAILY PRN
     Route: 065
  24. SIMETHICONE (DIMETHICONE) [Concomitant]
     Active Substance: DIMETHICONE
     Dosage: UNK (40 MG/0.6 ML ORAL DROPS,SUSPENSION 0.6 ML PER GTUBE 4 TIMES A DAY AS)
     Route: 065
  25. SODIUM CHLORIDE [Concomitant]
     Active Substance: SODIUM CHLORIDE
     Indication: Product used for unknown indication
     Dosage: 4 ML, PRN NIGHTLY
     Route: 065
  26. SODIUM PHOSPHATES [Concomitant]
     Active Substance: SODIUM PHOSPHATE, DIBASIC, ANHYDROUS\SODIUM PHOSPHATE, DIBASIC, HEPTAHYDRATE\SODIUM PHOSPHATE, MONOB
     Indication: Product used for unknown indication
     Dosage: 33 ML, QD PRN
     Route: 054
  27. TOBRAMYCIN [Concomitant]
     Active Substance: TOBRAMYCIN
     Indication: Product used for unknown indication
     Dosage: 80 MG, BID
     Route: 065
     Dates: start: 20210919
  28. TRAMETINIB DIMETHYL SULFOXIDE [Concomitant]
     Active Substance: TRAMETINIB DIMETHYL SULFOXIDE
     Indication: Product used for unknown indication
     Dosage: 0.5 MG, QD DAILY AT 1800
     Route: 048
  29. TRIAMCINOLONE [Concomitant]
     Active Substance: TRIAMCINOLONE
     Indication: Product used for unknown indication
     Dosage: UNK, BID, PRN
     Route: 061
  30. WHITE PETROLATUM [Concomitant]
     Active Substance: PETROLATUM
     Indication: Product used for unknown indication
     Dosage: UNK, TID, 1 APPLICATION
     Route: 061
  31. MACRODANTIN [Concomitant]
     Active Substance: NITROFURANTOIN
     Indication: Product used for unknown indication
     Dosage: UNK (DISSOLVE 1 CAPSULE IN 5 ML OF WATER, THEN ADMINISTER VIA G-T)
     Route: 065
  32. MYCOSTATIN [Concomitant]
     Active Substance: NYSTATIN
     Indication: Product used for unknown indication
     Dosage: UNK (TOPICAL POWDER)
     Route: 061
  33. SENNA [Concomitant]
     Active Substance: SENNA LEAF\SENNOSIDES\SENNOSIDES A AND B
     Indication: Product used for unknown indication
     Dosage: UNK (8.6-50 MG TAKE 1 TABLET BY G-TUBE ROUTE 2 TIMES A DAY 60 TABLET 3)
     Route: 065
  34. TYLENOL [Concomitant]
     Active Substance: ACETAMINOPHEN
     Indication: Product used for unknown indication
     Dosage: UNK (160 MG/5 ML (5 ML) ORAL SUSPENSION)
     Route: 048
  35. ZYRTEC [Concomitant]
     Active Substance: CETIRIZINE HYDROCHLORIDE
     Indication: Product used for unknown indication
     Dosage: 2.5 ML, QD ((2.5 MG TOTAL) BY G-TUBE ROUTE)
     Route: 065
  36. PEPCID [Concomitant]
     Active Substance: FAMOTIDINE
     Indication: Product used for unknown indication
     Dosage: UNK (20 MG/2.5 ML (8 MG/ML) ORAL SUSPENSION)
     Route: 065
  37. HYDROCORTISONE [Concomitant]
     Active Substance: HYDROCORTISONE
     Indication: Product used for unknown indication
     Dosage: UNK UNK, BID
     Route: 061
  38. WESTCORT [Concomitant]
     Active Substance: HYDROCORTISONE VALERATE
     Indication: Product used for unknown indication
     Dosage: UNK UNK, BID (APPLY TO FACE TWICE A DAY AS NEEDED)
     Route: 065
  39. ADVIL [Concomitant]
     Active Substance: IBUPROFEN
     Indication: Product used for unknown indication
     Dosage: UNK (100 MG/5 ML ORAL SUSPENSION)
     Route: 048
  40. MOTRIN [Concomitant]
     Active Substance: IBUPROFEN
     Indication: Product used for unknown indication
     Dosage: UNK (100 MG/5 ML ORAL SUSPENSION)
     Route: 048
  41. KEPPRA [Concomitant]
     Active Substance: LEVETIRACETAM
     Indication: Product used for unknown indication
     Dosage: 2.5 ML, BID (ORAL SOLUTION, (250 MG TOTAL) BY G-TUBE ROUTE)
     Route: 048
  42. ZINC OXIDE [Concomitant]
     Active Substance: ZINC OXIDE
     Indication: Product used for unknown indication
     Dosage: 56.7 G (APPLY 1 APPLICATION TOPICALLY AS NEEDED FOR IRRITATION)
     Route: 065
  43. CALMOSEPTINE [Concomitant]
     Active Substance: MENTHOL\ZINC OXIDE
     Indication: Product used for unknown indication
     Dosage: UNK (APPLY 1 APPLICATION TOPICALLY 4 TIMES A DAY AS NEEDED (GTUBE SITE))
     Route: 065
  44. BACTROBAN [Concomitant]
     Active Substance: MUPIROCIN\MUPIROCIN CALCIUM
     Indication: Product used for unknown indication
     Dosage: UNK (APPLY 1 APPLICATION TOPICALLY 3 TIMES A DAY. TO AFFECTED WOUND AREAS OF ARMS AND LEGS)
     Route: 065

REACTIONS (13)
  - Abdominal distension [Recovering/Resolving]
  - Intestinal obstruction [Unknown]
  - Tachycardia [Not Recovered/Not Resolved]
  - Enterococcal infection [Not Recovered/Not Resolved]
  - Pyrexia [Not Recovered/Not Resolved]
  - Rash [Not Recovered/Not Resolved]
  - Drug-induced liver injury [Unknown]
  - Pneumatosis intestinalis [Unknown]
  - Gastrointestinal motility disorder [Unknown]
  - Pain [Unknown]
  - Feeling abnormal [Unknown]
  - Urinary tract infection [Unknown]
  - Abdominal distension [Recovered/Resolved]

NARRATIVE: CASE EVENT DATE: 20201106
